FAERS Safety Report 9119838 (Version 2)
Quarter: 2013Q2

REPORT INFORMATION
  Report Type: Spontaneous
  Country: US (occurrence: US)
  Receive Date: 20130226
  Receipt Date: 20130424
  Transmission Date: 20140414
  Serious: No
  Sender: FDA-Public Use
  Company Number: US-PFIZER INC-2013067145

PATIENT
  Age: 63 Year
  Sex: Male
  Weight: 89.3 kg

DRUGS (4)
  1. SUTENT [Suspect]
     Indication: RENAL CANCER
     Dosage: 50 MG, 1X/DAY
     Route: 048
     Dates: start: 20120824
  2. SUTENT [Suspect]
     Dosage: 50 MG, 1X/DAY
     Route: 048
     Dates: start: 20120804
  3. TERAZOSIN [Concomitant]
     Indication: HYPERTENSION
     Dosage: 10 MG, 1X/DAY
  4. TERAZOSIN [Concomitant]
     Indication: BENIGN PROSTATIC HYPERPLASIA

REACTIONS (10)
  - Weight decreased [Unknown]
  - Ageusia [Unknown]
  - Decreased appetite [Unknown]
  - Diarrhoea [Unknown]
  - Syncope [Unknown]
  - Dehydration [Unknown]
  - Dizziness [Unknown]
  - Prostatomegaly [Unknown]
  - Disease progression [Unknown]
  - Renal cancer [Unknown]
